FAERS Safety Report 5114193-4 (Version None)
Quarter: 2006Q3

REPORT INFORMATION
  Report Type: 
  Country: None (occurrence: None)
  Receive Date: 20060802
  Receipt Date: 20060613
  Transmission Date: 20061208
  Serious: No
  Sender: FDA-Public Use
  Company Number: 200615156US

PATIENT
  Age: 41 Year
  Sex: Female
  Weight: 67.3 kg

DRUGS (5)
  1. KETEK [Suspect]
     Indication: SINUSITIS
     Dosage: ONCE
     Dates: start: 20060609, end: 20060609
  2. KETEK [Suspect]
     Indication: UPPER RESPIRATORY TRACT INFECTION
     Dosage: ONCE
     Dates: start: 20060609, end: 20060609
  3. SYNTHROID [Concomitant]
  4. ETHINYL ESTRADIOL TAB [Concomitant]
  5. NORGESTIMATE (ORTHO TRI-CYCLEN) [Concomitant]

REACTIONS (9)
  - ABDOMINAL PAIN UPPER [None]
  - ASTHENIA [None]
  - DIARRHOEA [None]
  - DIZZINESS [None]
  - HEADACHE [None]
  - NAUSEA [None]
  - PYREXIA [None]
  - VISION BLURRED [None]
  - VOMITING [None]
